FAERS Safety Report 19658329 (Version 3)
Quarter: 2021Q3

REPORT INFORMATION
  Report Type: Spontaneous
  Country: GB (occurrence: GB)
  Receive Date: 20210804
  Receipt Date: 20210910
  Transmission Date: 20211014
  Serious: Yes (Other)
  Sender: FDA-Public Use
  Company Number: GB-MYLANLABS-2021M1047887

PATIENT
  Age: 30 Year
  Sex: Female
  Weight: 57.1 kg

DRUGS (6)
  1. CETIRIZINE [Suspect]
     Active Substance: CETIRIZINE HYDROCHLORIDE
     Indication: SEASONAL ALLERGY
     Dosage: 1 DOSAGE FORM, AM (EVERY MORNING)
     Route: 048
     Dates: start: 20180101, end: 20210718
  2. SERETIDE [Concomitant]
     Active Substance: FLUTICASONE PROPIONATE\SALMETEROL XINAFOATE
     Indication: ILL-DEFINED DISORDER
     Dosage: UNK
  3. CETIRIZINE [Suspect]
     Active Substance: CETIRIZINE HYDROCHLORIDE
     Indication: ALLERGY TO ANIMAL
  4. CETIRIZINE [Suspect]
     Active Substance: CETIRIZINE HYDROCHLORIDE
     Indication: DUST ALLERGY
  5. CETIRIZINE [Suspect]
     Active Substance: CETIRIZINE HYDROCHLORIDE
     Indication: ILL-DEFINED DISORDER
  6. MONTELUKAST [Concomitant]
     Active Substance: MONTELUKAST SODIUM
     Indication: ILL-DEFINED DISORDER
     Dosage: UNK

REACTIONS (3)
  - Product use in unapproved indication [Unknown]
  - Withdrawal syndrome [Not Recovered/Not Resolved]
  - Pruritus [Not Recovered/Not Resolved]

NARRATIVE: CASE EVENT DATE: 20180101
